FAERS Safety Report 8124245-2 (Version None)
Quarter: 2012Q1

REPORT INFORMATION
  Report Type: 
  Country: None (occurrence: None)
  Receive Date: 20120209
  Receipt Date: 20120201
  Transmission Date: 20120608
  Serious: Yes (Hospitalization, Other)
  Sender: FDA-Public Use
  Company Number: US-BAYER-2011-113026

PATIENT
  Age: 49 Year
  Sex: Female
  Weight: 68.027 kg

DRUGS (9)
  1. TEA, GREEN [Concomitant]
     Route: 048
  2. OXYCONTIN [Concomitant]
     Route: 048
  3. YAZ [Suspect]
     Dosage: UNK
     Dates: start: 20081101, end: 20100201
  4. FISH OIL [Concomitant]
     Route: 048
  5. VITAMIN D [Concomitant]
     Route: 048
  6. MULTI-VITAMINS [Concomitant]
     Route: 048
  7. CORAL CALCIUM [Concomitant]
     Route: 048
  8. SELENIUM [Concomitant]
     Route: 048
  9. VITAMIN E [Concomitant]
     Route: 048

REACTIONS (3)
  - CHOLECYSTITIS CHRONIC [None]
  - MENTAL DISORDER [None]
  - BILIARY COLIC [None]
